FAERS Safety Report 13078377 (Version 1)
Quarter: 2017Q1

REPORT INFORMATION
  Report Type: Spontaneous
  Country: US (occurrence: US)
  Receive Date: 20170102
  Receipt Date: 20170102
  Transmission Date: 20170428
  Serious: No
  Sender: FDA-Public Use
  Company Number: US-009507513-1612USA006165

PATIENT
  Age: 58 Year
  Sex: Male

DRUGS (18)
  1. WARFARIN [Interacting]
     Active Substance: WARFARIN
     Dosage: 70 MG, QW
     Route: 048
  2. WARFARIN [Interacting]
     Active Substance: WARFARIN
     Dosage: 90 MG, QW
     Route: 048
  3. NITROGLYCERIN. [Concomitant]
     Active Substance: NITROGLYCERIN
     Indication: CHEST PAIN
     Dosage: 0.4 MG, PRN
     Route: 060
  4. ACETAMINOPHEN. [Concomitant]
     Active Substance: ACETAMINOPHEN
     Indication: PAIN
     Dosage: 1000 MG TWICE DAILY AS NEEDED
     Route: 048
  5. REBETOL [Interacting]
     Active Substance: RIBAVIRIN
     Dosage: 600 MG EVERY MORNING AND 400 MG EVERY EVENING
     Route: 048
  6. WARFARIN [Interacting]
     Active Substance: WARFARIN
     Dosage: 55 MG, QW
     Route: 048
  7. WARFARIN [Interacting]
     Active Substance: WARFARIN
     Dosage: 40 MG, QW (5 MG 5 DAYS A WEEK AND 7.5 MG 2 DAYS A WEEK)
     Route: 048
     Dates: start: 2009
  8. WARFARIN [Interacting]
     Active Substance: WARFARIN
     Dosage: 75 MG, QW
     Route: 048
  9. WARFARIN [Interacting]
     Active Substance: WARFARIN
     Indication: PROPHYLAXIS
     Dosage: 40 MG, QW (5 MG 5 DAYS A WEEK AND 7.5 MG 2 DAYS A WEEK)
     Route: 048
     Dates: start: 2009
  10. PRINIVIL [Concomitant]
     Active Substance: LISINOPRIL
     Dosage: 2.5 MG, QD
     Route: 048
  11. DILTIAZEM CD [Concomitant]
     Active Substance: DILTIAZEM
     Dosage: 120 MG, QD
     Route: 048
  12. REBETOL [Suspect]
     Active Substance: RIBAVIRIN
     Indication: HEPATITIS C
     Dosage: 600 MG, BID
     Route: 048
  13. WARFARIN [Interacting]
     Active Substance: WARFARIN
     Dosage: 80 MG, QW
     Route: 048
  14. WARFARIN [Interacting]
     Active Substance: WARFARIN
     Dosage: 42.5 MG, QW 5 MG ORALLY 4 DAYS A WEEK AND 7.5 MG 3 DAYS A WEEK
  15. VIEKIRA PAK [Interacting]
     Active Substance: DASABUVIR\OMBITASVIR\PARITAPREVIR\RITONAVIR
     Indication: HEPATITIS C
     Dosage: 100 MG/DAY OF RITONAVIR
  16. WARFARIN [Interacting]
     Active Substance: WARFARIN
     Dosage: 47.5 MG, QW
     Route: 048
  17. PANTOPRAZOLE [Concomitant]
     Active Substance: PANTOPRAZOLE SODIUM
     Dosage: 20 MG, QD
     Route: 048
  18. VITAMINS (UNSPECIFIED) [Concomitant]
     Active Substance: VITAMINS
     Dosage: 1 TABLET, QD
     Route: 048

REACTIONS (2)
  - Drug interaction [Unknown]
  - International normalised ratio increased [Recovered/Resolved]
